FAERS Safety Report 9784155 (Version 2)
Quarter: 2014Q1

REPORT INFORMATION
  Report Type: Spontaneous
  Country: US (occurrence: US)
  Receive Date: 20131226
  Receipt Date: 20140321
  Transmission Date: 20141002
  Serious: Yes (Other)
  Sender: FDA-Public Use
  Company Number: US-PFIZER INC-2013366756

PATIENT
  Age: 43 Year
  Sex: Male

DRUGS (1)
  1. SULFASALAZINE [Suspect]
     Indication: CROHN^S DISEASE
     Dosage: 4 G/DAY

REACTIONS (1)
  - Pneumonitis [Recovered/Resolved]
